FAERS Safety Report 10877325 (Version 1)
Quarter: 2015Q1

REPORT INFORMATION
  Report Type: Spontaneous
  Country: US (occurrence: US)
  Receive Date: 20150302
  Receipt Date: 20150302
  Transmission Date: 20150721
  Serious: Yes (Hospitalization, Other)
  Sender: FDA-Public Use
  Company Number: US-EMD SERONO-7168746

PATIENT
  Age: 45 Year
  Sex: Female

DRUGS (1)
  1. REBIF [Suspect]
     Active Substance: INTERFERON BETA-1A
     Indication: MULTIPLE SCLEROSIS
     Route: 058
     Dates: start: 20100713, end: 201306

REACTIONS (17)
  - Ulcer [Not Recovered/Not Resolved]
  - Wound [Recovering/Resolving]
  - Skin ulcer [Recovering/Resolving]
  - Dysarthria [Not Recovered/Not Resolved]
  - Blood glucose increased [Not Recovered/Not Resolved]
  - Femur fracture [Recovering/Resolving]
  - Fall [Unknown]
  - Decubitus ulcer [Not Recovered/Not Resolved]
  - Dizziness [Recovered/Resolved]
  - Amputation [Recovering/Resolving]
  - Diabetes mellitus inadequate control [Unknown]
  - Fatigue [Not Recovered/Not Resolved]
  - Loss of consciousness [Unknown]
  - Gait disturbance [Not Recovered/Not Resolved]
  - Diabetic foot [Unknown]
  - Blood glucose decreased [Unknown]
  - Dyskinesia [Unknown]

NARRATIVE: CASE EVENT DATE: 201205
